FAERS Safety Report 6272594-5 (Version None)
Quarter: 2009Q3

REPORT INFORMATION
  Report Type: 
  Country: None (occurrence: None)
  Receive Date: 20090713
  Receipt Date: 20090219
  Transmission Date: 20100115
  Serious: Yes (Other)
  Sender: FDA-Public Use
  Company Number: 615812

PATIENT
  Age: 50 Year
  Sex: Female
  Weight: 98.9 kg

DRUGS (16)
  1. BONIVA [Suspect]
     Indication: RESORPTION BONE INCREASED
     Dosage: 3 MG  1 PER TOTAL INTRAVENOUS
     Route: 042
     Dates: start: 20090122, end: 20090122
  2. NASONEX [Concomitant]
  3. PREDNISONE TAB [Concomitant]
  4. NOVOLOG [Concomitant]
  5. LEVEMIR [Concomitant]
  6. GABAPENTIN [Concomitant]
  7. CELEBREX [Concomitant]
  8. TIZANIDINE (TIZANIDINE HYDROCHLORIDE) [Concomitant]
  9. ZOLOFT [Concomitant]
  10. LASIX [Concomitant]
  11. UNIVASC [Concomitant]
  12. TRICOR [Concomitant]
  13. ADVICOR [Concomitant]
  14. B12 (CYANOCOBALAMIN) [Concomitant]
  15. COMBIVENT INHALER (IPRATROPIUM BROMIDE/SALBUTAMOL) [Concomitant]
  16. ACCOLATE [Concomitant]

REACTIONS (2)
  - CELLULITIS [None]
  - INJECTION SITE PAIN [None]
